FAERS Safety Report 5103638-1 (Version None)
Quarter: 2006Q3

REPORT INFORMATION
  Report Type: 
  Country: None (occurrence: None)
  Receive Date: 20060913
  Receipt Date: 20060905
  Transmission Date: 20061208
  Serious: Yes (Death, Hospitalization)
  Sender: FDA-Public Use
  Company Number: US-JNJFOC-20060902101

PATIENT
  Age: 38 Year
  Sex: Female

DRUGS (3)
  1. ACETAMINOPHEN [Suspect]
     Dosage: 1000 MG EVERY 3-4 HOURS, X 2 DAYS, ORAL
     Route: 048
  2. ACETAMINOPHEN [Suspect]
     Indication: DRUG USE FOR UNKNOWN INDICATION
     Dosage: 1000 MG EVERY 2.5 HOURS, X 2 DAYS, ORAL
     Route: 048
  3. ETHANOL [Suspect]
     Indication: INTENTIONAL DRUG MISUSE

REACTIONS (7)
  - BLOOD GLUCOSE DECREASED [None]
  - COAGULOPATHY [None]
  - CONFUSIONAL STATE [None]
  - HEPATIC FAILURE [None]
  - INTENTIONAL OVERDOSE [None]
  - INTERNATIONAL NORMALISED RATIO INCREASED [None]
  - RENAL IMPAIRMENT [None]
